FAERS Safety Report 6515977-8 (Version None)
Quarter: 2009Q4

REPORT INFORMATION
  Report Type: 
  Country: None (occurrence: None)
  Receive Date: 20091223
  Receipt Date: 20091216
  Transmission Date: 20100525
  Serious: Yes (Death, Hospitalization)
  Sender: FDA-Public Use
  Company Number: IT-ELI_LILLY_AND_COMPANY-IT200909003123

PATIENT
  Sex: Female
  Weight: 71 kg

DRUGS (55)
  1. GEMCITABINE HCL [Suspect]
     Indication: BREAST CANCER METASTATIC
     Dosage: 1075 MG, DAY 1,8,15 EVERY FOUR WEEKS
     Route: 042
     Dates: start: 20090723, end: 20090828
  2. DOCETAXEL [Suspect]
     Dosage: 40 MG, DAY ONE EVERY THREE WEEKS
     Route: 042
     Dates: start: 20090723, end: 20090828
  3. OXYCONTIN [Concomitant]
     Indication: BONE PAIN
     Dosage: UNK, UNK
     Dates: start: 20090713, end: 20090909
  4. VOLTAREN [Concomitant]
     Indication: BONE PAIN
     Dosage: UNK, UNK
     Dates: start: 20090713, end: 20090909
  5. ORAMORPH SR [Concomitant]
     Indication: BONE PAIN
     Dosage: UNK, UNK
     Dates: start: 20090820, end: 20090911
  6. ANTRA [Concomitant]
     Indication: PROPHYLAXIS
     Dosage: UNK, UNK
     Dates: start: 20090820, end: 20090909
  7. ANTRA [Concomitant]
     Dates: start: 20090912, end: 20090923
  8. PHOSPHO LAX [Concomitant]
     Indication: CONSTIPATION
     Dosage: UNK, UNK
     Dates: start: 20090820, end: 20090909
  9. PHOSPHO LAX [Concomitant]
     Dates: start: 20091011, end: 20091011
  10. LASIX [Concomitant]
     Indication: OEDEMA PERIPHERAL
     Dosage: UNK, UNK
     Dates: start: 20090820
  11. LASIX [Concomitant]
     Dates: start: 20090912, end: 20091102
  12. MORFINA                            /00036302/ [Concomitant]
     Indication: BONE PAIN
     Dates: start: 20090910, end: 20090921
  13. MORFINA                            /00036302/ [Concomitant]
     Dates: start: 20091103, end: 20091103
  14. NEXIUM [Concomitant]
     Dates: start: 20090911, end: 20090911
  15. NEXIUM [Concomitant]
     Dates: start: 20090924, end: 20091016
  16. ROCEPHIN [Concomitant]
     Dates: start: 20090911, end: 20090918
  17. ROCEPHIN [Concomitant]
     Dates: start: 20091102, end: 20091126
  18. RIFADIN [Concomitant]
     Dates: start: 20090911, end: 20090917
  19. DECADRON                                /CAN/ [Concomitant]
     Dosage: UNK, UNK
     Dates: start: 20090912, end: 20090918
  20. ALBUMIN NOS [Concomitant]
     Dates: start: 20090912, end: 20090927
  21. SELEPARINA [Concomitant]
     Dates: start: 20090912, end: 20091102
  22. PROPOFOL [Concomitant]
     Dates: start: 20090913, end: 20090914
  23. FENTANYL-100 [Concomitant]
     Dates: start: 20090913, end: 20090913
  24. NUTRISON [Concomitant]
     Dates: start: 20090913, end: 20091102
  25. VANCOMICINA [Concomitant]
     Dates: start: 20090914, end: 20091001
  26. GARDENALE [Concomitant]
     Dates: start: 20090914, end: 20090917
  27. EN [Concomitant]
     Dates: start: 20090915, end: 20091002
  28. TRANDATE [Concomitant]
     Dates: start: 20090915, end: 20090915
  29. TENORMIN [Concomitant]
     Dates: start: 20090915, end: 20090924
  30. TENORMIN [Concomitant]
     Dates: start: 20090930, end: 20091002
  31. TENORMIN [Concomitant]
     Dates: start: 20091003, end: 20091010
  32. DIPRIVAN [Concomitant]
     Dates: start: 20090916, end: 20090918
  33. VOLUVEN [Concomitant]
     Dates: start: 20090916, end: 20090916
  34. VOLUVEN [Concomitant]
     Dates: start: 20090918, end: 20090918
  35. VOLUVEN [Concomitant]
     Dates: start: 20090930, end: 20090930
  36. TOLEP [Concomitant]
     Dates: start: 20090916, end: 20091103
  37. MERREM [Concomitant]
     Dates: start: 20090917, end: 20091001
  38. PROSTIGMINA [Concomitant]
     Dates: start: 20090923, end: 20091002
  39. PERFALGAN [Concomitant]
     Dates: start: 20090922, end: 20090924
  40. MANNITOL [Concomitant]
     Dates: start: 20090924, end: 20091002
  41. NORADRENALIN                       /00127501/ [Concomitant]
     Dates: start: 20090925, end: 20090930
  42. FENTANEST [Concomitant]
     Dates: start: 20090930, end: 20090930
  43. FENTANEST [Concomitant]
     Dates: start: 20091002, end: 20091002
  44. DURAGESIC-100 [Concomitant]
     Dates: start: 20090930, end: 20091002
  45. DURAGESIC-100 [Concomitant]
     Dates: start: 20091005, end: 20091103
  46. LEXOTAN [Concomitant]
     Dates: start: 20091001, end: 20091001
  47. ALDACTONE [Concomitant]
     Dates: start: 20091003, end: 20091030
  48. TORADOL [Concomitant]
     Dates: start: 20091004, end: 20091004
  49. TORADOL [Concomitant]
     Dates: start: 20091010, end: 20091010
  50. TORADOL [Concomitant]
     Dates: start: 20091018, end: 20091018
  51. TORADOL [Concomitant]
     Dates: start: 20091103, end: 20091103
  52. CIPROXIN [Concomitant]
     Dates: start: 20091010, end: 20091016
  53. DIFLUCAN [Concomitant]
     Dates: start: 20091010, end: 20091016
  54. SOLDESAM [Concomitant]
     Dates: start: 20091015, end: 20091102
  55. VALIUM [Concomitant]
     Dates: start: 20091023, end: 20091102

REACTIONS (1)
  - MENINGITIS PNEUMOCOCCAL [None]
